FAERS Safety Report 7341865-3 (Version None)
Quarter: 2011Q1

REPORT INFORMATION
  Report Type: 
  Country: None (occurrence: None)
  Receive Date: 20110309
  Receipt Date: 20110303
  Transmission Date: 20110831
  Serious: Yes (Other)
  Sender: FDA-Public Use
  Company Number: IE-PFIZER INC-2011047637

PATIENT
  Age: 47 Year
  Sex: Male

DRUGS (1)
  1. LYRICA [Suspect]
     Dosage: 150 MG DAILY

REACTIONS (2)
  - LOWER RESPIRATORY TRACT INFECTION [None]
  - TRIGEMINAL NEURALGIA [None]
